FAERS Safety Report 17898471 (Version 4)
Quarter: 2020Q2

REPORT INFORMATION
  Report Type: Spontaneous
  Country: PL (occurrence: PL)
  Receive Date: 20200615
  Receipt Date: 20200630
  Transmission Date: 20200714
  Serious: Yes (Hospitalization, Other)
  Sender: FDA-Public Use
  Company Number: PL-JNJFOC-20200611412

PATIENT
  Age: 32 Year
  Sex: Male

DRUGS (9)
  1. PROMETAZIN [Interacting]
     Active Substance: PROMETHAZINE HYDROCHLORIDE
     Indication: COUGH
     Dosage: 50 MG, TID (3/DAY)
     Route: 065
  2. METAMIZOLE [Interacting]
     Active Substance: METAMIZOLE
     Indication: PYREXIA
     Route: 065
  3. DEXTROMETHORPHAN HYDROBROMIDE. [Interacting]
     Active Substance: DEXTROMETHORPHAN HYDROBROMIDE
     Indication: COUGH
     Route: 065
  4. ESOMEPRAZOL                        /01479301/ [Interacting]
     Active Substance: ESOMEPRAZOLE
     Indication: ABDOMINAL PAIN UPPER
     Dosage: 40 MG, DAILY
     Route: 065
  5. PSEUDOEPHEDRINE HYDROCHLORIDE. [Suspect]
     Active Substance: PSEUDOEPHEDRINE HYDROCHLORIDE
     Indication: UPPER RESPIRATORY TRACT INFECTION
     Route: 065
  6. CHLORPHENIRAMINE                   /00072501/ [Interacting]
     Active Substance: CHLORPHENIRAMINE
     Indication: UPPER RESPIRATORY TRACT INFECTION
     Route: 065
  7. ESCITALOPRAM [Interacting]
     Active Substance: ESCITALOPRAM OXALATE
     Indication: DEPRESSION
     Dosage: 10 MG, QD (1/DAY) IN THE MORNING
     Route: 065
  8. PARACETAMOL [Interacting]
     Active Substance: ACETAMINOPHEN
     Indication: UPPER RESPIRATORY TRACT INFECTION
     Route: 065
  9. PERAZINE                           /00162502/ [Interacting]
     Active Substance: PERAZINE DIMALEATE
     Indication: SLEEP DISORDER
     Dosage: 50 MG, QD (1/DAY) AT NIGHT
     Route: 065

REACTIONS (10)
  - Body temperature increased [Recovered/Resolved]
  - Clonus [Recovered/Resolved]
  - Sedation [Recovered/Resolved]
  - Abdominal pain [Recovered/Resolved]
  - Serotonin syndrome [Recovered/Resolved]
  - Restless legs syndrome [Recovered/Resolved]
  - Drug interaction [Unknown]
  - Diarrhoea [Recovered/Resolved]
  - Respiratory rate increased [Recovered/Resolved]
  - Hypersomnia [Recovered/Resolved]
